FAERS Safety Report 25497748 (Version 1)
Quarter: 2025Q3

REPORT INFORMATION
  Report Type: Spontaneous
  Country: IN (occurrence: IN)
  Receive Date: 20250701
  Receipt Date: 20250701
  Transmission Date: 20251020
  Serious: Yes (Life-Threatening, Hospitalization)
  Sender: CIPLA
  Company Number: IN-MLMSERVICE-20250611-PI541543-00050-3

PATIENT

DRUGS (2)
  1. AMLODIPINE [Suspect]
     Active Substance: AMLODIPINE BESYLATE
     Route: 048
     Dates: start: 2024
  2. NIFEDIPINE [Suspect]
     Active Substance: NIFEDIPINE
     Route: 048
     Dates: start: 2024

REACTIONS (4)
  - Oxygen saturation decreased [Recovered/Resolved]
  - Intentional overdose [Unknown]
  - Hypotension [Recovered/Resolved]
  - Hyperglycaemia [Recovered/Resolved]

NARRATIVE: CASE EVENT DATE: 20240101
